FAERS Safety Report 20940300 (Version 1)
Quarter: 2022Q2

REPORT INFORMATION
  Report Type: Other
  Country: US (occurrence: US)
  Receive Date: 20220609
  Receipt Date: 20220609
  Transmission Date: 20220721
  Serious: Yes (Death)
  Sender: FDA-Public Use
  Company Number: US-MAYNE PHARMA-2022MYN000589

PATIENT

DRUGS (2)
  1. CLOZAPINE [Suspect]
     Active Substance: CLOZAPINE
     Indication: Product used for unknown indication
     Dosage: 12.5 MG, BID MORNING AFTERNOON
     Route: 048
     Dates: start: 20220323, end: 20220326
  2. CLOZAPINE [Suspect]
     Active Substance: CLOZAPINE
     Dosage: 25 MG, BEDTIME

REACTIONS (1)
  - Death [Fatal]

NARRATIVE: CASE EVENT DATE: 20220326
